FAERS Safety Report 9705484 (Version 2)
Quarter: 2014Q1

REPORT INFORMATION
  Report Type: Spontaneous
  Country: LT (occurrence: LT)
  Receive Date: 20131122
  Receipt Date: 20140314
  Transmission Date: 20141002
  Serious: Yes (Other)
  Sender: FDA-Public Use
  Company Number: LT-ABBVIE-13P-234-1169207-00

PATIENT
  Age: 54 Year
  Sex: Male

DRUGS (5)
  1. HUMIRA [Suspect]
     Indication: CROHN^S DISEASE
     Dates: start: 2012, end: 201310
  2. SULFASALAZINE [Concomitant]
     Indication: CROHN^S DISEASE
     Dates: start: 2000
  3. PREDNIZONE [Concomitant]
     Indication: PRODUCT USED FOR UNKNOWN INDICATION
     Dosage: 30 MG IV;10MG P/O
     Dates: start: 20130909
  4. OMEPRAZOLE [Concomitant]
     Indication: ULCER
     Dates: start: 20130909
  5. OMEPRAZOLE [Concomitant]
     Indication: PROPHYLAXIS

REACTIONS (3)
  - Polyarthritis [Unknown]
  - Chest X-ray abnormal [Unknown]
  - Osteoarthritis [Unknown]
